FAERS Safety Report 4744409-5 (Version None)
Quarter: 2005Q3

REPORT INFORMATION
  Report Type: 
  Country: None (occurrence: None)
  Receive Date: 20050811
  Receipt Date: 20050811
  Transmission Date: 20060218
  Serious: Yes (Other)
  Sender: FDA-Public Use
  Company Number: None

PATIENT
  Age: 19 Year
  Sex: Female
  Weight: 54.4316 kg

DRUGS (1)
  1. MEDROXYPROGESTERONE ACETATE INJ [Suspect]
     Indication: CONTRACEPTION
     Dosage: 150MG IM Q 3 MONTHS
     Route: 030
     Dates: start: 20050516, end: 20050801

REACTIONS (3)
  - DRUG EXPOSURE DURING PREGNANCY [None]
  - MEDICATION ERROR [None]
  - PREGNANCY WITH INJECTABLE CONTRACEPTIVE [None]
